FAERS Safety Report 13601961 (Version 2)
Quarter: 2017Q3

REPORT INFORMATION
  Report Type: Spontaneous
  Country: US (occurrence: US)
  Receive Date: 20170601
  Receipt Date: 20170728
  Transmission Date: 20171127
  Serious: Yes (Other)
  Sender: FDA-Public Use
  Company Number: US-PFIZER INC-2017240413

PATIENT
  Sex: Female

DRUGS (1)
  1. LYRICA [Suspect]
     Active Substance: PREGABALIN
     Dosage: 50 MG, UNK
     Dates: start: 20170527, end: 20170531

REACTIONS (3)
  - Hypertension [Not Recovered/Not Resolved]
  - Swelling [Unknown]
  - Diabetes mellitus [Not Recovered/Not Resolved]
